FAERS Safety Report 4486386-0 (Version None)
Quarter: 2004Q4

REPORT INFORMATION
  Report Type: 
  Country: None (occurrence: None)
  Receive Date: 20041026
  Receipt Date: 20041026
  Transmission Date: 20050328
  Serious: Yes (Hospitalization)
  Sender: FDA-Public Use
  Company Number: None

PATIENT
  Age: 35 Year
  Sex: Male

DRUGS (1)
  1. SULFADIAZINE [Suspect]
     Indication: TOXOPLASMOSIS
     Dosage: 1000  QID  ORAL
     Route: 048
     Dates: start: 20040110, end: 20040210

REACTIONS (7)
  - ASTHENIA [None]
  - BODY TEMPERATURE INCREASED [None]
  - CONJUNCTIVAL HYPERAEMIA [None]
  - NAUSEA [None]
  - RASH PRURITIC [None]
  - SKIN DESQUAMATION [None]
  - VOMITING [None]
